FAERS Safety Report 4679178-0 (Version None)
Quarter: 2005Q2

REPORT INFORMATION
  Report Type: 
  Country: None (occurrence: None)
  Receive Date: 20050526
  Receipt Date: 20050202
  Transmission Date: 20051028
  Serious: Yes (Other)
  Sender: FDA-Public Use
  Company Number: WAES 0502USA00473

PATIENT
  Age: 48 Year
  Sex: Female
  Weight: 77.5651 kg

DRUGS (4)
  1. VYTORIN [Suspect]
     Dosage: 10-80 MG/UNK/PO
     Route: 048
     Dates: start: 20041217, end: 20050121
  2. ADIPEX [Concomitant]
  3. ANTIMICROBIAL (UNSPECIFIED) [Concomitant]
  4. VERAPAMIL [Concomitant]

REACTIONS (1)
  - RHABDOMYOLYSIS [None]
